FAERS Safety Report 22072048 (Version 1)
Quarter: 2023Q1

REPORT INFORMATION
  Report Type: Spontaneous
  Country: JP (occurrence: JP)
  Receive Date: 20230308
  Receipt Date: 20230308
  Transmission Date: 20230417
  Serious: Yes (Other)
  Sender: FDA-Public Use
  Company Number: JP-BRISTOL-MYERS SQUIBB COMPANY-2023-031304

PATIENT
  Age: 74 Year
  Sex: Male

DRUGS (2)
  1. YERVOY [Suspect]
     Active Substance: IPILIMUMAB
     Indication: Choriocarcinoma
     Dosage: 3 COURSES
  2. OPDIVO [Suspect]
     Active Substance: NIVOLUMAB
     Indication: Choriocarcinoma
     Dosage: 3 COURSES

REACTIONS (4)
  - Drug eruption [Unknown]
  - Adrenal insufficiency [Unknown]
  - Pulmonary alveolar haemorrhage [Recovering/Resolving]
  - Off label use [Unknown]
